FAERS Safety Report 8518118-0 (Version None)
Quarter: 2012Q3

REPORT INFORMATION
  Report Type: 
  Country: None (occurrence: None)
  Receive Date: 20120712
  Receipt Date: 20120712
  Transmission Date: 20120928
  Serious: Yes (Death)
  Sender: FDA-Public Use
  Company Number: None

PATIENT
  Age: 39 Year
  Sex: Male
  Weight: 99.7913 kg

DRUGS (2)
  1. OXYCONTIN [Suspect]
     Indication: DEPENDENCE
  2. SONOXIN [Concomitant]

REACTIONS (2)
  - MYOCARDIAL INFARCTION [None]
  - DRUG ABUSE [None]
